FAERS Safety Report 14846268 (Version 1)
Quarter: 2018Q2

REPORT INFORMATION
  Report Type: Spontaneous
  Country: US (occurrence: US)
  Receive Date: 20180504
  Receipt Date: 20180504
  Transmission Date: 20180711
  Serious: No
  Sender: FDA-Public Use
  Company Number: US-TEVA-2018-US-888343

PATIENT
  Age: 79 Year
  Sex: Female

DRUGS (1)
  1. HYDROXYCHLOROQUINE SULFATE. [Suspect]
     Active Substance: HYDROXYCHLOROQUINE SULFATE
     Indication: RHEUMATOID ARTHRITIS
     Dates: start: 20180405, end: 20180420

REACTIONS (7)
  - Alopecia [Unknown]
  - Erythema [Unknown]
  - Eye swelling [Unknown]
  - Drug eruption [Unknown]
  - Rash erythematous [Unknown]
  - Mouth swelling [Unknown]
  - Wrong technique in product usage process [Unknown]

NARRATIVE: CASE EVENT DATE: 20180418
